FAERS Safety Report 12188249 (Version 1)
Quarter: 2016Q1

REPORT INFORMATION
  Report Type: Spontaneous
  Country: US (occurrence: US)
  Receive Date: 20160317
  Receipt Date: 20160317
  Transmission Date: 20160526
  Serious: Yes (Death)
  Sender: FDA-Public Use
  Company Number: PHHY2016US032369

PATIENT
  Age: 80 Year
  Sex: Female

DRUGS (8)
  1. BUPIVACAINE [Concomitant]
     Active Substance: BUPIVACAINE
     Indication: PRODUCT USED FOR UNKNOWN INDICATION
     Dosage: 2 ML, UNK
     Route: 014
  2. CHLORHEXIDINE GLUCONATE. [Concomitant]
     Active Substance: CHLORHEXIDINE GLUCONATE
     Indication: PRODUCT USED FOR UNKNOWN INDICATION
     Route: 065
  3. ACETAMINOPHEN W/HYDROCODONE [Suspect]
     Active Substance: ACETAMINOPHEN\HYDROCODONE
     Indication: PAIN
     Route: 065
  4. LIDOCAINE. [Concomitant]
     Active Substance: LIDOCAINE
     Indication: PRODUCT USED FOR UNKNOWN INDICATION
     Dosage: 1 ML, UNK
     Route: 065
  5. METHYLPREDNISOLONE. [Suspect]
     Active Substance: METHYLPREDNISOLONE
     Indication: PRODUCT USED FOR UNKNOWN INDICATION
     Dosage: 1 ML, UNK
     Route: 014
  6. ISOVUE 300 [Concomitant]
     Active Substance: IOPAMIDOL
     Indication: PRODUCT USED FOR UNKNOWN INDICATION
     Dosage: 0.5 ML, UNK
     Route: 065
  7. ISOPROPYL ALCOHOL. [Concomitant]
     Active Substance: ISOPROPYL ALCOHOL
     Indication: PRODUCT USED FOR UNKNOWN INDICATION
     Route: 065
  8. NAPROXEN SODIUM. [Suspect]
     Active Substance: NAPROXEN SODIUM
     Indication: PAIN
     Route: 065

REACTIONS (5)
  - Sacroiliitis [Fatal]
  - Multiple organ dysfunction syndrome [Fatal]
  - Arthritis infective [Fatal]
  - Drug ineffective [Unknown]
  - Acute kidney injury [Fatal]
